FAERS Safety Report 7936675-X (Version None)
Quarter: 2011Q4

REPORT INFORMATION
  Report Type: 
  Country: None (occurrence: None)
  Receive Date: 20111123
  Receipt Date: 20101015
  Transmission Date: 20120403
  Serious: No
  Sender: FDA-Public Use
  Company Number: US-BAYER-201038830NA

PATIENT

DRUGS (2)
  1. CIPROFLOXACIN [Suspect]
  2. AVELOX [Concomitant]

REACTIONS (1)
  - NEUROLOGICAL SYMPTOM [None]
